FAERS Safety Report 5672775-5 (Version None)
Quarter: 2008Q1

REPORT INFORMATION
  Report Type: 
  Country: None (occurrence: None)
  Receive Date: 20080319
  Receipt Date: 20071108
  Transmission Date: 20080703
  Serious: No
  Sender: FDA-Public Use
  Company Number: US-KINGPHARMUSA00001-K200701449

PATIENT

DRUGS (3)
  1. ALTACE [Suspect]
     Dosage: 5 MG, QD
     Route: 048
     Dates: end: 20071106
  2. ALTACE [Suspect]
     Dosage: 10 MG QD
     Route: 048
     Dates: start: 20071107
  3. TENEX [Concomitant]
     Dosage: 1 MG, QD AT HS
     Route: 048

REACTIONS (1)
  - GINGIVAL DISORDER [None]
